FAERS Safety Report 15425041 (Version 1)
Quarter: 2018Q4

REPORT INFORMATION
  Report Type: Spontaneous
  Country: US (occurrence: US)
  Receive Date: 20180925
  Receipt Date: 20180925
  Transmission Date: 20190204
  Serious: No
  Sender: FDA-Public Use
  Company Number: US-THERAPEUTICSMD-2018TMD00069

PATIENT
  Sex: Female
  Weight: 58.96 kg

DRUGS (6)
  1. IMVEXXY [Suspect]
     Active Substance: ESTRADIOL
     Indication: DYSPAREUNIA
     Dosage: 1 DOSAGE UNITS, 2X/WEEK BEFORE BEDTIME
     Dates: start: 20180805
  2. IMVEXXY [Suspect]
     Active Substance: ESTRADIOL
     Indication: VULVOVAGINAL DRYNESS
     Dosage: 1 DOSAGE UNITS, 1X/DAY BEFORE BEDTIME
     Dates: start: 20180722, end: 20180804
  3. ASPIRIN. [Concomitant]
     Active Substance: ASPIRIN
     Dosage: UNK, 1X/DAY
  4. ZYRTEC [Concomitant]
     Active Substance: CETIRIZINE HYDROCHLORIDE
     Dosage: UNK, 1X/DAY
  5. CALCIUM [Concomitant]
     Active Substance: CALCIUM
     Dosage: UNK, 1X/DAY
  6. PRAVASTATIN. [Concomitant]
     Active Substance: PRAVASTATIN
     Dosage: UNK, 1X/DAY

REACTIONS (1)
  - Urinary incontinence [Recovering/Resolving]

NARRATIVE: CASE EVENT DATE: 2018
